FAERS Safety Report 4617002-2 (Version None)
Quarter: 2005Q2

REPORT INFORMATION
  Report Type: 
  Country: None (occurrence: None)
  Receive Date: 20050311
  Receipt Date: 20041209
  Transmission Date: 20051028
  Serious: No
  Sender: FDA-Public Use
  Company Number: 2004-00905

PATIENT
  Age: 43 Year
  Sex: Female

DRUGS (5)
  1. VELCADE [Suspect]
  2. THALOMID [Suspect]
     Indication: MULTIPLE MYELOMA
     Dosage: 200.00 MG, ORAL
     Route: 048
     Dates: start: 20010806, end: 20020101
  3. THALOMID [Suspect]
     Indication: MULTIPLE MYELOMA
     Dosage: 50.00 MG, ORAL
     Route: 048
     Dates: start: 20040401
  4. DOXIL [Suspect]
  5. DECADRON [Suspect]
     Dosage: 40.00 MG

REACTIONS (9)
  - DIFFICULTY IN WALKING [None]
  - HEADACHE [None]
  - INFLUENZA LIKE ILLNESS [None]
  - OEDEMA PERIPHERAL [None]
  - PAIN [None]
  - PARAESTHESIA [None]
  - PHARYNGOLARYNGEAL PAIN [None]
  - WEIGHT INCREASED [None]
  - WHITE BLOOD CELL COUNT DECREASED [None]
